FAERS Safety Report 14599385 (Version 2)
Quarter: 2018Q1

REPORT INFORMATION
  Report Type: Spontaneous
  Country: BG (occurrence: BG)
  Receive Date: 20180305
  Receipt Date: 20180329
  Transmission Date: 20180509
  Serious: Yes (Hospitalization, Other)
  Sender: FDA-Public Use
  Company Number: BG-JNJFOC-20180238573

PATIENT
  Age: 73 Year
  Sex: Female

DRUGS (11)
  1. XARELTO [Suspect]
     Active Substance: RIVAROXABAN
     Indication: CEREBROVASCULAR ACCIDENT PROPHYLAXIS
     Route: 048
  2. BISOPROLOL [Concomitant]
     Active Substance: BISOPROLOL
     Route: 065
  3. MOLSIDOMIN [Concomitant]
     Route: 065
  4. XARELTO [Suspect]
     Active Substance: RIVAROXABAN
     Indication: ATRIAL FIBRILLATION
     Route: 048
  5. DICLOFENAC SODIUM. [Suspect]
     Active Substance: DICLOFENAC SODIUM
     Indication: ARTHRALGIA
     Route: 065
  6. ATORVASTATIN [Concomitant]
     Active Substance: ATORVASTATIN
     Route: 065
  7. XARELTO [Suspect]
     Active Substance: RIVAROXABAN
     Indication: CEREBROVASCULAR ACCIDENT PROPHYLAXIS
     Route: 048
     Dates: start: 201603, end: 2017
  8. DIGOXIN. [Concomitant]
     Active Substance: DIGOXIN
     Route: 065
  9. XARELTO [Suspect]
     Active Substance: RIVAROXABAN
     Indication: ATRIAL FIBRILLATION
     Route: 048
     Dates: start: 201603, end: 2017
  10. TORASEMID [Concomitant]
     Active Substance: TORSEMIDE
     Route: 065
  11. VALSARTAN. [Concomitant]
     Active Substance: VALSARTAN
     Route: 065

REACTIONS (10)
  - Abdominal hernia repair [Unknown]
  - Cardiac failure chronic [Not Recovered/Not Resolved]
  - Tricuspid valve incompetence [Unknown]
  - Melaena [Recovered/Resolved]
  - Anaemia [Recovered/Resolved]
  - Peripheral swelling [Recovering/Resolving]
  - Mitral valve incompetence [Unknown]
  - Arthralgia [Unknown]
  - Pulmonary arterial hypertension [Unknown]
  - Abscess drainage [Unknown]

NARRATIVE: CASE EVENT DATE: 201605
